FAERS Safety Report 23725431 (Version 1)
Quarter: 2024Q2

REPORT INFORMATION
  Report Type: Spontaneous
  Country: NL (occurrence: NL)
  Receive Date: 20240410
  Receipt Date: 20240410
  Transmission Date: 20240716
  Serious: Yes (Hospitalization)
  Sender: FDA-Public Use
  Company Number: None

PATIENT
  Age: 71 Year
  Sex: Male
  Weight: 71 kg

DRUGS (10)
  1. PEMETREXED [Suspect]
     Active Substance: PEMETREXED
     Indication: Lung adenocarcinoma stage IV
     Dosage: 1000 MG, BASICALLY EVERY 3 WEEKS; PEMETREXED INFOPL CONC / BRAND NAME NOT SPECIFIED
     Route: 065
     Dates: start: 20230814, end: 20240223
  2. OXAZEPAM [Concomitant]
     Active Substance: OXAZEPAM
     Indication: Product used for unknown indication
     Dosage: ;OXAZEPAM TABLET  / BRAND NAME NOT SPECIFIED
     Route: 065
  3. POLYETHYLENE GLYCOLS [Concomitant]
     Active Substance: POLYETHYLENE GLYCOLS
     Indication: Product used for unknown indication
     Dosage: POWDER FOR DRINK; MACROGOL/SALTS PDR V DRINK (MOVIC/MOLAX/LAXT/GEN) / BRAND NAME NOT SPECIFIED
     Route: 065
  4. KEYTRUDA [Suspect]
     Active Substance: PEMBROLIZUMAB
     Indication: Lung adenocarcinoma stage IV
     Dosage: 200 MG, BASICALLY EVERY 3 WEEKS; PEMBROLIZUMAB INFOPL CONC 25MG/ML / KEYTRUDA INFVLST CONC 25MG/M...
     Route: 065
     Dates: start: 20230814, end: 20240223
  5. TAMSULOSIN [Concomitant]
     Active Substance: TAMSULOSIN
     Indication: Product used for unknown indication
     Dosage: MODIFIED-RELEASE CAPSULE, 0.4 MG (MILLIGRAM); TAMSULOSIN CAPSULE MGA / BRAND NAME NOT SPECIFIED
     Route: 065
  6. PANTOPRAZOLE [Concomitant]
     Active Substance: PANTOPRAZOLE
     Indication: Product used for unknown indication
     Dosage: PANTOPRAZOLE TABLET MSR  / BRAND NAME NOT SPECIFIED
     Route: 065
  7. APIXABAN [Concomitant]
     Active Substance: APIXABAN
     Indication: Product used for unknown indication
     Dosage: APIXABAN TABLET  / BRAND NAME NOT SPECIFIED
     Route: 065
  8. SUCRALFATE [Concomitant]
     Active Substance: SUCRALFATE
     Indication: Product used for unknown indication
     Dosage: SUCRALFATE GRANULATE  / BRAND NAME NOT SPECIFIED
     Route: 065
  9. CISPLATIN [Suspect]
     Active Substance: CISPLATIN
     Indication: Lung adenocarcinoma stage IV
     Dosage: 150 MG, BASICALLY EVERY 3 WEEKS; CISPLATINE INFOPL CONC  / BRAND NAME NOT SPECIFIED
     Route: 065
     Dates: start: 20230814, end: 20240223
  10. DOMPERIDONE [Concomitant]
     Active Substance: DOMPERIDONE
     Indication: Product used for unknown indication
     Dosage: DOMPERIDONE  / BRAND NAME NOT SPECIFIED
     Route: 065

REACTIONS (1)
  - Immune-mediated cholangitis [Not Recovered/Not Resolved]
